FAERS Safety Report 9319791 (Version 1)
Quarter: 2013Q2

REPORT INFORMATION
  Report Type: Spontaneous
  Country: NL (occurrence: NL)
  Receive Date: 20130530
  Receipt Date: 20130530
  Transmission Date: 20140414
  Serious: Yes (Hospitalization)
  Sender: FDA-Public Use
  Company Number: NL-GLAXOSMITHKLINE-B0895428A

PATIENT
  Age: 83 Year
  Sex: Male

DRUGS (7)
  1. ACICLOVIR [Suspect]
     Indication: HERPES ZOSTER
     Dosage: 800MG FIVE TIMES PER DAY
     Route: 048
     Dates: start: 201304, end: 20130421
  2. TRYPTIZOL [Suspect]
     Indication: HERPES ZOSTER
     Dosage: 50MG TWICE PER DAY
     Route: 048
     Dates: start: 201304, end: 20130421
  3. SPIRIVA [Concomitant]
     Dosage: 18MCG PER DAY
  4. ASCAL CARDIO [Concomitant]
     Dosage: 100MG PER DAY
     Route: 048
  5. PERINDOPRIL [Concomitant]
     Dosage: 8MG PER DAY
     Route: 048
  6. BISOPROLOL [Concomitant]
     Dosage: 2.5MG PER DAY
     Route: 048
  7. HYDROCHLOROTHIAZIDE [Concomitant]
     Dosage: 12.5MG PER DAY
     Route: 048

REACTIONS (3)
  - Delirium [Recovered/Resolved]
  - Dry mouth [Unknown]
  - Drug interaction [Unknown]
